FAERS Safety Report 7279948-9 (Version None)
Quarter: 2011Q1

REPORT INFORMATION
  Report Type: 
  Country: None (occurrence: None)
  Receive Date: 20110208
  Receipt Date: 20101217
  Transmission Date: 20110831
  Serious: Yes (Hospitalization, Other)
  Sender: FDA-Public Use
  Company Number: US-BAYER-201039500NA

PATIENT
  Sex: Female
  Weight: 63.636 kg

DRUGS (6)
  1. IBUPROFEN [Concomitant]
     Indication: CYST RUPTURE
  2. IBUPROFEN [Concomitant]
     Indication: FIBROMA
  3. YAZ [Suspect]
     Indication: MENSTRUAL CYCLE MANAGEMENT
     Route: 048
     Dates: start: 20070901, end: 20080301
  4. YASMIN [Suspect]
     Indication: DYSMENORRHOEA
     Route: 048
  5. YAZ [Suspect]
  6. YAZ [Suspect]
     Indication: DYSMENORRHOEA

REACTIONS (6)
  - LOSS OF CONSCIOUSNESS [None]
  - PULMONARY EMBOLISM [None]
  - CHEST PAIN [None]
  - TACHYCARDIA [None]
  - HEART RATE IRREGULAR [None]
  - DYSPNOEA [None]
